FAERS Safety Report 9195908 (Version 1)
Quarter: 2013Q1

REPORT INFORMATION
  Report Type: Spontaneous
  Country: US (occurrence: None)
  Receive Date: 20120703
  Receipt Date: 20120703
  Transmission Date: 20140127
  Serious: No
  Sender: FDA-Public Use
  Company Number: PHEH2012US008556

PATIENT
  Age: 56 Year
  Sex: Male

DRUGS (2)
  1. GILENYA (FTY) CAPSULE, 0.5MG [Suspect]
     Indication: MULTIPLE SCLEROSIS
     Route: 048
     Dates: start: 20120412
  2. FAMPRIDINE (FAMPRIDINE) [Concomitant]

REACTIONS (2)
  - Seasonal allergy [None]
  - Hypersensitivity [None]
